FAERS Safety Report 19396002 (Version 1)
Quarter: 2021Q2

REPORT INFORMATION
  Report Type: Spontaneous
  Country: AU (occurrence: AU)
  Receive Date: 20210610
  Receipt Date: 20210610
  Transmission Date: 20210717
  Serious: Yes (Hospitalization, Other)
  Sender: FDA-Public Use
  Company Number: AU-JNJFOC-20210618961

PATIENT
  Age: 73 Year
  Sex: Male
  Weight: 64.8 kg

DRUGS (19)
  1. MAGMIN [Concomitant]
     Active Substance: MAGNESIUM ASPARTATE
     Dosage: UNK
     Dates: start: 20180215
  2. LANOXIN?PG [Concomitant]
     Dosage: 62.5 UG
     Dates: start: 20200722, end: 20200722
  3. FUROSEMIDE. [Concomitant]
     Active Substance: FUROSEMIDE
     Dosage: 20 MG
     Dates: start: 20200924, end: 20210310
  4. FUROSEMIDE. [Concomitant]
     Active Substance: FUROSEMIDE
     Dosage: 20 MG
     Dates: start: 20200924, end: 20210403
  5. RIVAROXABAN [Suspect]
     Active Substance: RIVAROXABAN
     Indication: DEEP VEIN THROMBOSIS
     Dosage: 20 MG, OM
     Route: 048
     Dates: start: 20200723, end: 20200918
  6. PANAFCORTELONE [Concomitant]
     Active Substance: PREDNISOLONE
     Dosage: 1 MG
     Dates: start: 20180215
  7. LANOXIN?PG [Concomitant]
     Dosage: 62.5 UG
     Dates: start: 20200722, end: 20210214
  8. FUROSEMIDE. [Concomitant]
     Active Substance: FUROSEMIDE
     Dosage: 20 MG
     Dates: start: 20200722, end: 20200722
  9. RIVAROXABAN [Suspect]
     Active Substance: RIVAROXABAN
     Indication: ATRIAL FIBRILLATION
     Dosage: 20 MG, OM
     Route: 048
     Dates: start: 20200922, end: 20210403
  10. RIVAROXABAN [Suspect]
     Active Substance: RIVAROXABAN
     Indication: DEEP VEIN THROMBOSIS
     Dosage: 20 MG, OM
     Route: 048
     Dates: start: 20210408
  11. SOMAC [Concomitant]
     Active Substance: PANTOPRAZOLE SODIUM
     Dosage: 20 MG
     Dates: start: 20200722, end: 20210403
  12. EUTROXSIG [Concomitant]
     Active Substance: LEVOTHYROXINE SODIUM
     Dosage: 50 UG
     Dates: start: 20180215
  13. APO?PANTOPRAZOLE [Concomitant]
     Active Substance: PANTOPRAZOLE SODIUM
     Dosage: 40 MG
     Dates: start: 20180215, end: 20200721
  14. LANOXIN?PG [Concomitant]
     Dosage: 62.5 UG
     Dates: start: 20210215
  15. VOLIBRIS [Concomitant]
     Active Substance: AMBRISENTAN
     Dosage: 10 MG
     Dates: start: 20181203
  16. ADCIRCA [Concomitant]
     Active Substance: TADALAFIL
     Dosage: 20 MG
     Dates: start: 20210310
  17. COBAL?B12 [Concomitant]
     Dosage: 1 MG/ML
  18. BETAVIT [THIAMINE HYDROCHLORIDE] [Concomitant]
     Dosage: 100 MG
     Dates: start: 20180202
  19. FUROSEMIDE. [Concomitant]
     Active Substance: FUROSEMIDE
     Dosage: 20 MG
     Dates: start: 20200723, end: 20200923

REACTIONS (13)
  - Upper gastrointestinal haemorrhage [Recovered/Resolved]
  - Telangiectasia [Unknown]
  - Malaise [Unknown]
  - Faeces discoloured [Unknown]
  - Syncope [Unknown]
  - Haematemesis [Unknown]
  - Abdominal pain [Unknown]
  - Hypotension [Unknown]
  - Melaena [Unknown]
  - Discoloured vomit [Unknown]
  - Gastrooesophageal reflux disease [Unknown]
  - Dizziness [Unknown]
  - Abdominal discomfort [Unknown]

NARRATIVE: CASE EVENT DATE: 20210402
